FAERS Safety Report 8272018-2 (Version None)
Quarter: 2012Q2

REPORT INFORMATION
  Report Type: 
  Country: None (occurrence: None)
  Receive Date: 20120410
  Receipt Date: 20120330
  Transmission Date: 20120825
  Serious: Yes (Hospitalization)
  Sender: FDA-Public Use
  Company Number: FR-BRISTOL-MYERS SQUIBB COMPANY-16499501

PATIENT
  Age: 75 Year
  Sex: Female

DRUGS (8)
  1. ATORVASTATIN [Concomitant]
  2. POTASSIUM CHLORIDE [Concomitant]
     Dosage: 1DF: 1INTAKE
  3. LASIX [Concomitant]
  4. BISOPROLOL FUMARATE [Concomitant]
  5. ALLOPURINOL [Concomitant]
     Dosage: 1 TAB/DAY
  6. COUMADIN [Suspect]
     Dosage: 27-JAN-2012 INTERUP AND STARTED AGAIN ON 01-FEB-2012
     Route: 048
     Dates: end: 20120127
  7. RAMIPRIL [Concomitant]
     Dosage: 2 TABS/DAY
  8. CHONDROSULF [Concomitant]

REACTIONS (2)
  - UPPER GASTROINTESTINAL HAEMORRHAGE [None]
  - ANAEMIA [None]
